FAERS Safety Report 4774508-3 (Version None)
Quarter: 2005Q3

REPORT INFORMATION
  Report Type: 
  Country: None (occurrence: None)
  Receive Date: 20050919
  Receipt Date: 20050919
  Transmission Date: 20060218
  Serious: Yes (Disabling, Other)
  Sender: FDA-Public Use
  Company Number: None

PATIENT
  Sex: Male
  Weight: 83.9154 kg

DRUGS (2)
  1. ELIDEL [Suspect]
     Indication: DERMATITIS
     Dosage: APPLY TO RASH BID X 2 WEEKS TOP
     Route: 061
     Dates: start: 20020430, end: 20050130
  2. TOPICORT CREAM [Concomitant]

REACTIONS (2)
  - LYMPHOMA [None]
  - MYCOSIS FUNGOIDES [None]
